FAERS Safety Report 8347626-0 (Version None)
Quarter: 2012Q2

REPORT INFORMATION
  Report Type: 
  Country: None (occurrence: None)
  Receive Date: 20120509
  Receipt Date: 20120425
  Transmission Date: 20120825
  Serious: Yes (Hospitalization)
  Sender: FDA-Public Use
  Company Number: US-ELI_LILLY_AND_COMPANY-US201204010099

PATIENT
  Age: 74 Year
  Sex: Female

DRUGS (29)
  1. ZYPREXA [Suspect]
     Indication: BIPOLAR DISORDER
     Dosage: 20 MG, QD
  2. LAMICTAL [Concomitant]
     Dosage: 100 MG, EACH MORNING
  3. LOSARTAN POTASSIUM [Concomitant]
     Dosage: 50 MG, BID
  4. NIFEDIPINE [Concomitant]
     Dosage: 90 MG, QD
  5. FISH OIL [Concomitant]
  6. VITAMIN B COMPLEX CAP [Concomitant]
  7. OSTEO BI-FLEX [Concomitant]
     Dosage: UNK, BID
  8. ZYPREXA [Suspect]
     Dosage: 5 MG, TID
  9. ZYPREXA [Suspect]
     Dosage: 5 MG, EACH MORNING
  10. METFORMIN HCL [Concomitant]
     Dosage: 500 MG, BID
  11. LAMICTAL [Concomitant]
     Dosage: 200 MG, EACH EVENING
  12. IRON [Concomitant]
     Dosage: UNK, QD
  13. GLIPIZIDE [Concomitant]
     Dosage: UNK, QD
  14. ZYPREXA [Suspect]
     Dosage: 10 MG, TID
  15. METOPROLOL TARTRATE [Concomitant]
     Dosage: 25 MG, BID
  16. ASPIRIN [Concomitant]
     Dosage: 325 MG, UNK
  17. COLACE [Concomitant]
     Dosage: 200 MG, UNK
  18. ZYPREXA [Suspect]
     Dosage: 5 MG, EACH EVENING
  19. VITAMIN D [Concomitant]
  20. SYNTHROID [Concomitant]
     Dosage: 175 UG, UNK
  21. LISINOPRIL [Concomitant]
     Dosage: 40 MG, BID
  22. VITAMIN E [Concomitant]
  23. LECITHIN [Concomitant]
     Dosage: 500 MG, UNK
  24. VESICARE [Concomitant]
  25. EFFEXOR XR [Concomitant]
     Dosage: 75 MG, BID
  26. MAGNESIUM OXIDE [Concomitant]
     Dosage: 400 MG, BID
  27. REMERON [Concomitant]
     Dosage: 15 MG, UNK
  28. CALCIUM CARBONATE [Concomitant]
     Dosage: UNK, BID
  29. MULTI-VITAMIN [Concomitant]

REACTIONS (15)
  - SLEEP DISORDER [None]
  - WITHDRAWAL SYNDROME [None]
  - OVERDOSE [None]
  - URINE OUTPUT DECREASED [None]
  - FATIGUE [None]
  - TREMOR [None]
  - DIABETES MELLITUS INADEQUATE CONTROL [None]
  - ANXIETY [None]
  - NAUSEA [None]
  - DYSKINESIA [None]
  - DYSPHAGIA [None]
  - POLLAKIURIA [None]
  - HALLUCINATION [None]
  - EXCESSIVE EYE BLINKING [None]
  - DIABETES MELLITUS [None]
